FAERS Safety Report 17270610 (Version 1)
Quarter: 2020Q1

REPORT INFORMATION
  Report Type: Spontaneous
  Country: ES (occurrence: ES)
  Receive Date: 20200114
  Receipt Date: 20200114
  Transmission Date: 20200409
  Serious: Yes (Hospitalization)
  Sender: FDA-Public Use
  Company Number: ES-B.I. PHARMACEUTICALS,INC./RIDGEFIELD-2020-12-001865

PATIENT
  Age: 54 Year
  Sex: Male
  Weight: 84.5 kg

DRUGS (9)
  1. PRANDIN [REPAGLINIDE] [Concomitant]
     Indication: DIABETIC NEUROPATHY
     Dosage: 1 COMPRIMIDO CADA 12 H?START PERIOD 22 DAYS
     Route: 065
     Dates: start: 20191118
  2. BISOPROLOL [Concomitant]
     Active Substance: BISOPROLOL
     Indication: CHRONIC HEPATITIS C
     Dosage: 1 COMPRIMIDO POR LA MANANA?START PERIOD 253 DAYS
     Route: 065
     Dates: start: 20190401
  3. SEGURIL [Concomitant]
     Active Substance: FUROSEMIDE
     Indication: HEPATIC FAILURE
     Dosage: 1 COMPRIMIDO CADA DIA?START PERIOD 1197 DAYS
     Route: 042
     Dates: start: 20160830
  4. CARDYL [Concomitant]
     Active Substance: ATORVASTATIN CALCIUM
     Indication: TYPE V HYPERLIPIDAEMIA
     Dosage: COMPRIMIDO CADA DIA?START PERIOD 208 DAYS
     Route: 065
     Dates: start: 20190516
  5. ADENURIC [Concomitant]
     Active Substance: FEBUXOSTAT
     Indication: NEPHRITIS
     Dosage: 1 COMPRIMIDO CADA DIA?START PERIOD 930 DAYS
     Route: 065
     Dates: start: 20170524
  6. JENTADUETO [Concomitant]
     Active Substance: LINAGLIPTIN\METFORMIN HYDROCHLORIDE
     Indication: DIABETIC NEUROPATHY
     Dosage: 1 COMPRIMIDO CADA 1?START PERIOD 916 DAYS?STRENGTH: 2.5/850MG
     Route: 065
     Dates: start: 20170607
  7. MICARDISPLUS [Concomitant]
     Active Substance: HYDROCHLOROTHIAZIDE\TELMISARTAN
     Indication: ESSENTIAL HYPERTENSION
     Dosage: 1 COMPRIMIDO CADA DIA?START PERIOD 930 DAYS?STRENGTH: 80/12.5MG
     Route: 065
     Dates: start: 20170524
  8. NITRENDIPINO [Concomitant]
     Indication: CHRONIC HEPATITIS C
     Dosage: 1 COMPRIMIDO CADA DIA?START PERIOD 1197 DAYS
     Route: 065
     Dates: start: 20160830
  9. JARDIANCE [Suspect]
     Active Substance: EMPAGLIFLOZIN
     Indication: DIABETIC NEUROPATHY
     Dosage: 1 COMPRIMIDO CADA DIA; IN TOTAL?START PERIOD 208 DAYS
     Route: 065
     Dates: start: 20190516

REACTIONS (1)
  - Toe amputation [Recovering/Resolving]

NARRATIVE: CASE EVENT DATE: 20191209
